FAERS Safety Report 4384834-8 (Version None)
Quarter: 2004Q2

REPORT INFORMATION
  Report Type: 
  Country: None (occurrence: None)
  Receive Date: 20040621
  Receipt Date: 20040609
  Transmission Date: 20050107
  Serious: Yes (Other)
  Sender: FDA-Public Use
  Company Number: 200410145BBE

PATIENT
  Sex: Male

DRUGS (2)
  1. IMMUNE GLOBULIN INTRAVENOUS (HUMAN) [Suspect]
     Indication: HYPOGAMMAGLOBULINAEMIA
  2. IMMUNOGLOBULIN (BAXTER) (IMMUNOGLOBULINS) [Suspect]

REACTIONS (2)
  - HEPATITIS B [None]
  - HEPATITIS C [None]
